FAERS Safety Report 15245893 (Version 2)
Quarter: 2022Q1

REPORT INFORMATION
  Report Type: Report from Study
  Country: FR (occurrence: FR)
  Receive Date: 20180806
  Receipt Date: 20220303
  Transmission Date: 20220423
  Serious: Yes (Other)
  Sender: FDA-Public Use
  Company Number: FR-PFIZER INC-2018307278

PATIENT
  Sex: Male
  Weight: 39 kg

DRUGS (17)
  1. GEMTUZUMAB OZOGAMICIN [Suspect]
     Active Substance: GEMTUZUMAB OZOGAMICIN
     Indication: Acute myeloid leukaemia
     Dosage: 3 MG/M2, 2X/DAY
     Route: 042
     Dates: start: 20180629, end: 20180705
  2. MITOXANTRONE [Suspect]
     Active Substance: MITOXANTRONE HYDROCHLORIDE
     Indication: Acute myeloid leukaemia
     Dosage: 12 MG/M2, 2X/DAY
     Route: 042
     Dates: start: 20180626, end: 20180629
  3. MORPHINE [Concomitant]
     Active Substance: MORPHINE
     Indication: Pain
     Dosage: UNK
     Dates: start: 20180627
  4. ACUPAN [Concomitant]
     Active Substance: NEFOPAM HYDROCHLORIDE
     Dosage: 40 MG, 2X/DAY
     Dates: start: 20180626
  5. PIPERACILLIN SODIUM\TAZOBACTAM SODIUM [Concomitant]
     Active Substance: PIPERACILLIN SODIUM\TAZOBACTAM SODIUM
     Dosage: 2.4 G, 2X/DAY
     Dates: start: 20180626, end: 20180721
  6. PERFALGAN [Concomitant]
     Active Substance: ACETAMINOPHEN
     Dosage: 1.6 G, 2X/DAY
     Dates: start: 20180626
  7. VANCOMYCIN [Concomitant]
     Active Substance: VANCOMYCIN
     Dosage: 2.0 G, 2X/DAY
     Dates: start: 20180626, end: 20180712
  8. ZOFRAN [Concomitant]
     Active Substance: ONDANSETRON HYDROCHLORIDE
     Dosage: 16.0 MG, 2X/DAY
     Dates: start: 20180627
  9. PHLOROGLUCINOL [Concomitant]
     Active Substance: PHLOROGLUCINOL
     Dosage: 80.0 MG, 2X/DAY
     Dates: start: 20180627
  10. PANTOPRAZOLE [Concomitant]
     Active Substance: PANTOPRAZOLE
     Dosage: 40.0 MG, 2X/DAY
     Dates: start: 20180627
  11. ALIZAPRIDE HYDROCHLORIDE [Concomitant]
     Active Substance: ALIZAPRIDE HYDROCHLORIDE
     Dosage: 120 MG, 2X/DAY
     Dates: start: 20180627
  12. BACTRIM [Concomitant]
     Active Substance: SULFAMETHOXAZOLE\TRIMETHOPRIM
     Dosage: 800 MG, 2X/DAY
     Dates: start: 20180627
  13. LOXEN [Concomitant]
     Dosage: 30 MG, 2X/DAY
     Dates: start: 20180627, end: 20180727
  14. TRANEXAMIC ACID [Concomitant]
     Active Substance: TRANEXAMIC ACID
     Dosage: 380.0 MG, 2X/DAY
     Dates: start: 20180628
  15. AMPHOTERICIN B [Concomitant]
     Active Substance: AMPHOTERICIN B
     Dosage: 40.0 MG, 2X/DAY
     Dates: start: 20180630, end: 20180715
  16. VITAMIN K [Concomitant]
     Active Substance: PHYTONADIONE
     Dosage: 18 ML, 2X/DAY
     Dates: start: 20180630
  17. FUNGIZONE [Concomitant]
     Active Substance: AMPHOTERICIN B
     Dosage: 18 ML, 2X/DAY
     Dates: start: 20180630

REACTIONS (2)
  - Mucosal inflammation [Recovered/Resolved]
  - Decreased appetite [Recovered/Resolved]

NARRATIVE: CASE EVENT DATE: 20180716
